FAERS Safety Report 18293998 (Version 1)
Quarter: 2020Q3

REPORT INFORMATION
  Report Type: Spontaneous
  Country: US (occurrence: US)
  Receive Date: 20200922
  Receipt Date: 20200922
  Transmission Date: 20201103
  Serious: Yes (Other)
  Sender: FDA-Public Use
  Company Number: None

PATIENT
  Sex: Male

DRUGS (1)
  1. TAXOL [Suspect]
     Active Substance: PACLITAXEL

REACTIONS (5)
  - Hyperhidrosis [None]
  - Anaphylactic reaction [None]
  - Flushing [None]
  - Erythema [None]
  - Infusion related reaction [None]

NARRATIVE: CASE EVENT DATE: 20200916
